FAERS Safety Report 5869188-X (Version None)
Quarter: 2008Q3

REPORT INFORMATION
  Report Type: 
  Country: None (occurrence: None)
  Receive Date: 20080903
  Receipt Date: 20080821
  Transmission Date: 20090109
  Serious: Yes (Hospitalization)
  Sender: FDA-Public Use
  Company Number: US-ELI_LILLY_AND_COMPANY-US200704000291

PATIENT
  Sex: Female
  Weight: 68.934 kg

DRUGS (12)
  1. BYETTA [Suspect]
     Indication: TYPE 2 DIABETES MELLITUS
     Dosage: 5 UG, 2/D
     Route: 058
     Dates: start: 20051201, end: 20060101
  2. BYETTA [Suspect]
     Dosage: 10 UG, 2/D
     Route: 058
     Dates: start: 20060101, end: 20070328
  3. BYETTA [Suspect]
     Dosage: 10 UG, DAILY (1/D)
     Route: 058
     Dates: start: 20070329, end: 20070331
  4. BYETTA [Suspect]
     Dosage: 10 UG, 2/D
     Route: 058
     Dates: start: 20070401
  5. METFORMIN HCL [Concomitant]
     Indication: DIABETES MELLITUS
     Dosage: 1000 MG, 2/D
     Dates: start: 20030101
  6. AVANDIA [Concomitant]
     Indication: DIABETES MELLITUS
     Dosage: 8 MG, DAILY (1/D)
     Dates: start: 20010101
  7. GLIMEPIRIDE [Concomitant]
     Indication: DIABETES MELLITUS
     Dosage: 4 MG, DAILY (1/D)
     Dates: start: 20050101
  8. PREDNISONE TAB [Concomitant]
     Indication: ASTHMA
     Dosage: 5 MG, DAILY (1/D)
     Dates: end: 20070228
  9. PREDNISONE TAB [Concomitant]
     Dosage: 5 MG, DAILY (1/D)
     Dates: start: 20070330
  10. LIPITOR [Concomitant]
     Indication: BLOOD CHOLESTEROL
     Dosage: 20 MG, DAILY (1/D)
     Dates: start: 20050101, end: 20070329
  11. LIPITOR [Concomitant]
     Dosage: 10 MG, DAILY (1/D)
     Dates: start: 20070330
  12. FISH OIL [Concomitant]
     Indication: MEDICAL DIET
     Dosage: 1000 MG, DAILY (1/D)
     Dates: start: 20061001

REACTIONS (4)
  - BONE GRAFT [None]
  - NAUSEA [None]
  - NERVE INJURY [None]
  - WEIGHT DECREASED [None]
